FAERS Safety Report 7914990-3 (Version None)
Quarter: 2011Q4

REPORT INFORMATION
  Report Type: 
  Country: None (occurrence: None)
  Receive Date: 20111115
  Receipt Date: 20111102
  Transmission Date: 20120403
  Serious: Yes (Life-Threatening, Hospitalization)
  Sender: FDA-Public Use
  Company Number: TR-ROCHE-782286

PATIENT
  Sex: Male
  Weight: 88.3 kg

DRUGS (10)
  1. GLIMEPIRIDE [Concomitant]
  2. ACETAMINOPHEN [Concomitant]
  3. ACETYLSALICYLIC ACID SRT [Concomitant]
  4. NEBIVOLOL HCL [Concomitant]
     Dates: start: 20110301, end: 20110611
  5. ACTEMRA [Suspect]
     Indication: RHEUMATOID ARTHRITIS
     Route: 042
     Dates: start: 20110526, end: 20110615
  6. BLINDED ADALIMUMAB [Suspect]
     Indication: RHEUMATOID ARTHRITIS
     Route: 058
     Dates: start: 20110526, end: 20110615
  7. PREDNISOLONE [Concomitant]
  8. VASTIN [Concomitant]
     Dosage: DRUG- ATROVASTIN CALCIUM
  9. ATORVASTATIN CALCIUM [Concomitant]
     Dates: start: 20080101
  10. TRIMETAZIDINE [Concomitant]

REACTIONS (2)
  - ACUTE CORONARY SYNDROME [None]
  - ISCHAEMIC STROKE [None]
